FAERS Safety Report 11881762 (Version 1)
Quarter: 2015Q4

REPORT INFORMATION
  Report Type: Spontaneous
  Country: US (occurrence: None)
  Receive Date: 20151230
  Receipt Date: 20151230
  Transmission Date: 20160305
  Serious: No
  Sender: FDA-Public Use
  Company Number: None

PATIENT
  Age: 38 Year
  Sex: Female

DRUGS (1)
  1. IBRANCE [Suspect]
     Active Substance: PALBOCICLIB
     Indication: BREAST CANCER
     Dosage: 125 MG, DAILY X 21 DAYS, 7 OFF, ORAL
     Route: 048
     Dates: start: 20150528

REACTIONS (3)
  - Therapy cessation [None]
  - Surgery [None]
  - Treatment noncompliance [None]

NARRATIVE: CASE EVENT DATE: 201512
